FAERS Safety Report 18860863 (Version 2)
Quarter: 2021Q1

REPORT INFORMATION
  Report Type: Spontaneous
  Country: GB (occurrence: GB)
  Receive Date: 20210208
  Receipt Date: 20210217
  Transmission Date: 20210420
  Serious: Yes (Other)
  Sender: FDA-Public Use
  Company Number: PHHY2016GB187050

PATIENT
  Age: 44 Year
  Sex: Female

DRUGS (14)
  1. LETROZOLE. [Suspect]
     Active Substance: LETROZOLE
     Dosage: 2.5 MG, QD
     Route: 048
     Dates: start: 20160725, end: 20200203
  2. EXEMESTANE. [Suspect]
     Active Substance: EXEMESTANE
     Indication: HER2 POSITIVE BREAST CANCER
     Dosage: 25 MG,QD
     Route: 048
     Dates: start: 20160622, end: 20160718
  3. ANASTROZOLE. [Suspect]
     Active Substance: ANASTROZOLE
     Indication: HER2 POSITIVE BREAST CANCER
     Dosage: UNK
     Route: 048
     Dates: start: 20160516, end: 20160607
  4. TRASTUZUMAB. [Suspect]
     Active Substance: TRASTUZUMAB
     Indication: HER2 POSITIVE BREAST CANCER
     Dosage: 600 MG, Q3W
     Route: 058
     Dates: start: 20150922
  5. PERTUZUMAB. [Suspect]
     Active Substance: PERTUZUMAB
     Indication: HER2 POSITIVE BREAST CANCER
     Dosage: 420 MG, Q3W
     Route: 042
     Dates: start: 20150922
  6. ZOLADEX [Concomitant]
     Active Substance: GOSERELIN ACETATE
     Indication: PRODUCT USED FOR UNKNOWN INDICATION
     Dosage: 3.6 MG, 28D
     Route: 058
     Dates: start: 20160307
  7. DOCETAXEL. [Suspect]
     Active Substance: DOCETAXEL
     Indication: HER2 POSITIVE BREAST CANCER
     Dosage: 70 MG, Q3W
     Route: 042
     Dates: start: 20150922, end: 20160218
  8. DOCETAXEL. [Suspect]
     Active Substance: DOCETAXEL
     Dosage: 100 MG, Q3W
     Route: 042
     Dates: start: 20150923, end: 20151126
  9. LETROZOLE. [Suspect]
     Active Substance: LETROZOLE
     Indication: BREAST CANCER METASTATIC
     Dosage: 2.5 MG,QD
     Route: 048
     Dates: start: 20160404, end: 20160509
  10. TRASTUZUMAB. [Suspect]
     Active Substance: TRASTUZUMAB
     Dosage: 972.619 MG
     Route: 065
  11. DENOSUMAB [Suspect]
     Active Substance: DENOSUMAB
     Indication: PRODUCT USED FOR UNKNOWN INDICATION
     Dosage: 120 MG, QMO
     Route: 058
     Dates: start: 20150922
  12. DOCETAXEL. [Suspect]
     Active Substance: DOCETAXEL
     Dosage: 70 MG, Q2W  LAST DOSE WAS ON 18 DEC 2015
     Route: 042
     Dates: start: 20151217
  13. PERTUZUMAB. [Suspect]
     Active Substance: PERTUZUMAB
     Dosage: 680.833 MG
     Route: 065
  14. EXEMESTANE. [Suspect]
     Active Substance: EXEMESTANE
     Dosage: 25 MG, QD
     Route: 048
     Dates: start: 202003

REACTIONS (15)
  - Neuropathy peripheral [Recovered/Resolved]
  - Arthralgia [Not Recovered/Not Resolved]
  - Musculoskeletal chest pain [Recovered/Resolved]
  - Insomnia [Recovered/Resolved]
  - Oral herpes [Recovered/Resolved]
  - Haemorrhoids [Recovered/Resolved]
  - Mouth ulceration [Recovered/Resolved]
  - Oral herpes [Recovered/Resolved]
  - Eczema [Recovering/Resolving]
  - Arthralgia [Not Recovered/Not Resolved]
  - Headache [Recovered/Resolved]
  - Tendonitis [Recovered/Resolved]
  - Rash [Recovered/Resolved]
  - Insomnia [Not Recovered/Not Resolved]
  - Peripheral swelling [Recovered/Resolved]

NARRATIVE: CASE EVENT DATE: 20151026
